FAERS Safety Report 15139758 (Version 2)
Quarter: 2018Q3

REPORT INFORMATION
  Report Type: Spontaneous
  Country: CN (occurrence: CN)
  Receive Date: 20180713
  Receipt Date: 20180714
  Transmission Date: 20181010
  Serious: Yes (Life-Threatening, Hospitalization, Other)
  Sender: FDA-Public Use
  Company Number: CN-009507513-1807CHN003125

PATIENT
  Age: 50 Year
  Sex: Male
  Weight: 59 kg

DRUGS (3)
  1. STERILE WATER [Concomitant]
     Active Substance: WATER
     Indication: ECZEMA
     Dosage: 2 ML, QD
     Route: 061
     Dates: start: 20180514, end: 20180514
  2. BETAMETHASONE SODIUM PHOSPHATE [Suspect]
     Active Substance: BETAMETHASONE SODIUM PHOSPHATE
     Indication: ECZEMA
     Dosage: 1 ML, QD
     Route: 061
     Dates: start: 20180514, end: 20180514
  3. LIDOCAINE HYDROCHLORIDE. [Suspect]
     Active Substance: LIDOCAINE HYDROCHLORIDE
     Indication: ECZEMA
     Dosage: 1 ML, QD
     Route: 061
     Dates: start: 20180514, end: 20180514

REACTIONS (1)
  - Anaphylactic shock [Recovering/Resolving]

NARRATIVE: CASE EVENT DATE: 20180514
